FAERS Safety Report 5923631-6 (Version None)
Quarter: 2008Q4

REPORT INFORMATION
  Report Type: 
  Country: None (occurrence: None)
  Receive Date: 20081020
  Receipt Date: 20081001
  Transmission Date: 20090506
  Serious: Yes (Disabling)
  Sender: FDA-Public Use
  Company Number: AU-ASTRAZENECA-2008AP04990

PATIENT
  Age: 39 Year
  Sex: Male

DRUGS (5)
  1. SYMBICORT [Suspect]
     Indication: ASTHMA
     Dosage: 200/6
     Route: 055
     Dates: start: 20070501, end: 20080616
  2. SYMBICORT [Suspect]
     Dosage: 200/6
     Route: 055
     Dates: start: 20080617, end: 20080627
  3. SYMBICORT [Suspect]
     Route: 055
  4. CELEBREX [Concomitant]
     Route: 048
  5. NEXIUM [Concomitant]
     Route: 065

REACTIONS (2)
  - CONDITION AGGRAVATED [None]
  - DRUG INEFFECTIVE [None]
